FAERS Safety Report 5234203-3 (Version None)
Quarter: 2007Q1

REPORT INFORMATION
  Report Type: 
  Country: None (occurrence: None)
  Receive Date: 20070209
  Receipt Date: 20070130
  Transmission Date: 20070707
  Serious: Yes (Hospitalization)
  Sender: FDA-Public Use
  Company Number: 2006AP05294

PATIENT
  Age: 21759 Day
  Sex: Female
  Weight: 74 kg

DRUGS (5)
  1. IRESSA [Suspect]
     Indication: CHRONIC OBSTRUCTIVE PULMONARY DISEASE
     Route: 048
     Dates: start: 20061005, end: 20061103
  2. BRICANYL [Concomitant]
     Indication: CHRONIC OBSTRUCTIVE PULMONARY DISEASE
     Dosage: STARTED } 6 MONTHS PRIOR TO STUDY START
     Route: 055
  3. DORMICUM [Concomitant]
     Indication: PREMEDICATION
     Route: 042
     Dates: start: 20061005, end: 20061005
  4. ATROPINE [Concomitant]
     Indication: PREMEDICATION
     Route: 030
     Dates: start: 20061005, end: 20061005
  5. KODIMAGNYL [Concomitant]
     Indication: CHEST PAIN
     Route: 030
     Dates: start: 20061006, end: 20061006

REACTIONS (1)
  - PNEUMONIA [None]
